FAERS Safety Report 9552301 (Version 2)
Quarter: 2013Q3

REPORT INFORMATION
  Report Type: Spontaneous
  Country: DE (occurrence: DE)
  Receive Date: 20130925
  Receipt Date: 20130925
  Transmission Date: 20140515
  Serious: Yes (Other)
  Sender: FDA-Public Use
  Company Number: DE-ASTRAZENECA-2013SE48285

PATIENT
  Sex: Male
  Weight: 94 kg

DRUGS (8)
  1. BRILIQUE [Suspect]
     Indication: CORONARY ARTERY DISEASE
     Route: 048
     Dates: start: 201301, end: 201307
  2. BRILIQUE [Suspect]
     Indication: STENT PLACEMENT
     Route: 048
     Dates: start: 201301, end: 201307
  3. ASS PROTECT [Concomitant]
     Indication: CORONARY ARTERY DISEASE
     Dosage: FOR YEARS
     Route: 048
  4. CANDESARTAN [Concomitant]
     Route: 048
  5. SIMVASTATIN [Concomitant]
  6. PROCORALAN [Concomitant]
  7. ALLOPURINOL [Concomitant]
  8. SPIRIVA DAE [Concomitant]

REACTIONS (1)
  - Haematoma [Recovered/Resolved]
